FAERS Safety Report 5199821-X (Version None)
Quarter: 2007Q1

REPORT INFORMATION
  Report Type: 
  Country: None (occurrence: None)
  Receive Date: 20070105
  Receipt Date: 20070102
  Transmission Date: 20070707
  Serious: Yes (Other)
  Sender: FDA-Public Use
  Company Number: US-AVENTIS-200710033US

PATIENT
  Sex: Female
  Weight: 68 kg

DRUGS (13)
  1. LOVENOX [Suspect]
     Indication: THROMBOSIS
     Route: 058
     Dates: start: 20061214
  2. CARDIZEM [Suspect]
     Dosage: DOSE: UNK
  3. AVAPRO [Suspect]
     Dosage: DOSE: UNK
  4. ZYRTEC [Concomitant]
     Dosage: DOSE: UNK
  5. SINGULAIR [Concomitant]
     Dosage: DOSE: UNK
  6. NEXIUM [Concomitant]
     Dosage: DOSE: UNK
  7. UNITHROID [Concomitant]
     Dosage: DOSE: UNK
  8. LIPITOR [Concomitant]
     Dosage: DOSE: UNK
  9. ASPIRIN [Concomitant]
     Dosage: DOSE: UNK
  10. BENADRYL                           /00000402/ [Concomitant]
     Dosage: DOSE: UNK
  11. KLONOPIN [Concomitant]
     Dosage: DOSE: UNK
  12. VALIUM [Concomitant]
     Dosage: DOSE: UNK
  13. TYLENOL [Concomitant]
     Dosage: DOSE: UNK

REACTIONS (6)
  - ASTHENIA [None]
  - BLOOD PRESSURE FLUCTUATION [None]
  - CONTUSION [None]
  - DIZZINESS [None]
  - DYSPNOEA [None]
  - GINGIVAL BLEEDING [None]
